FAERS Safety Report 16175219 (Version 1)
Quarter: 2019Q2

REPORT INFORMATION
  Report Type: Spontaneous
  Country: US (occurrence: US)
  Receive Date: 20190409
  Receipt Date: 20190409
  Transmission Date: 20190711
  Serious: No
  Sender: FDA-Public Use
  Company Number: US-PERRIGO-19US001918

PATIENT
  Age: 59 Year
  Sex: Male
  Weight: 81.63 kg

DRUGS (1)
  1. SULFACETAMIDE SODIUM. [Suspect]
     Active Substance: SULFACETAMIDE SODIUM
     Indication: PRURITUS
     Dosage: 1 APPLICATION, QD
     Route: 061
     Dates: start: 20190201, end: 20190205

REACTIONS (5)
  - Application site erythema [Recovered/Resolved]
  - Off label use [Recovered/Resolved]
  - Skin wrinkling [Not Recovered/Not Resolved]
  - Application site pruritus [Recovered/Resolved]
  - Application site discolouration [Not Recovered/Not Resolved]

NARRATIVE: CASE EVENT DATE: 20190201
